FAERS Safety Report 7510838-X (Version None)
Quarter: 2011Q2

REPORT INFORMATION
  Report Type: 
  Country: None (occurrence: None)
  Receive Date: 20110531
  Receipt Date: 20110519
  Transmission Date: 20111010
  Serious: No
  Sender: FDA-Public Use
  Company Number: US-BIOGENIDEC-2011BI016518

PATIENT
  Age: 51 Year
  Sex: Female

DRUGS (1)
  1. TYSABRI [Suspect]
     Indication: MULTIPLE SCLEROSIS
     Route: 042
     Dates: start: 20110428

REACTIONS (8)
  - PAIN IN EXTREMITY [None]
  - FLUSHING [None]
  - ARTHRALGIA [None]
  - HOT FLUSH [None]
  - SENSATION OF HEAVINESS [None]
  - ASTHENIA [None]
  - FATIGUE [None]
  - HEADACHE [None]
